FAERS Safety Report 10080322 (Version 1)
Quarter: 2014Q2

REPORT INFORMATION
  Report Type: Report from Study
  Country: BR (occurrence: BR)
  Receive Date: 20140415
  Receipt Date: 20140415
  Transmission Date: 20141212
  Serious: Yes (Hospitalization, Other)
  Sender: FDA-Public Use
  Company Number: PHHY2014BR045680

PATIENT
  Age: 46 Year
  Sex: Female
  Weight: 80 kg

DRUGS (7)
  1. GILENYA [Suspect]
     Indication: MULTIPLE SCLEROSIS
     Dosage: 1 DF, DAILY
     Route: 048
     Dates: start: 201402
  2. GILENYA [Suspect]
     Dosage: 1 DF, DAILY
     Route: 048
     Dates: start: 20140409
  3. DULOXETINE [Concomitant]
     Indication: ANXIETY
     Dosage: 1 DF, DAILY
  4. VITAMIN D [Concomitant]
     Dosage: 6 DRP, DAILY
  5. VITAMIIN A [Concomitant]
     Dosage: 1 DF, DAILY
  6. BACLOFEN [Concomitant]
     Indication: MULTIPLE SCLEROSIS
     Dosage: 1 DF, BID
  7. MANTIDAN [Concomitant]
     Indication: MULTIPLE SCLEROSIS
     Dosage: 0.5 DF, BID

REACTIONS (5)
  - Thrombosis [Recovering/Resolving]
  - Pain in extremity [Unknown]
  - Pneumonia [Recovered/Resolved]
  - Fall [Unknown]
  - Limb injury [Unknown]
